FAERS Safety Report 24148691 (Version 1)
Quarter: 2024Q3

REPORT INFORMATION
  Report Type: Report from Study
  Country: TR (occurrence: TR)
  Receive Date: 20240729
  Receipt Date: 20240729
  Transmission Date: 20241016
  Serious: Yes (Other)
  Sender: ROCHE
  Company Number: TR-BoehringerIngelheim-2024-BI-040069

PATIENT

DRUGS (1)
  1. ALTEPLASE [Suspect]
     Active Substance: ALTEPLASE
     Indication: Retinal haemorrhage
     Dosage: ROUTE: SUBRETINAL?(ACTILYSE, 10 MG/ML) AT A CONCENTRATION OF 25 UG/0.1 ML WAS INJECTED INTO THE SUBR
     Route: 065

REACTIONS (4)
  - Hyphaema [Unknown]
  - Vitreous haemorrhage [Not Recovered/Not Resolved]
  - Off label use [Unknown]
  - Off label use [Unknown]
